FAERS Safety Report 8845420 (Version 2)
Quarter: 2012Q4

REPORT INFORMATION
  Report Type: 
  Country: US (occurrence: US)
  Receive Date: 20121017
  Receipt Date: 20121211
  Transmission Date: 20130627
  Serious: No
  Sender: FDA-Public Use
  Company Number: US-ASTRAZENECA-2012SE77233

PATIENT
  Age: 49 Year
  Sex: Male

DRUGS (2)
  1. SEROQUEL [Suspect]
     Route: 048
  2. SEROQUEL [Suspect]
     Route: 048

REACTIONS (3)
  - Hernia [Unknown]
  - Depression [Unknown]
  - Intentional drug misuse [Unknown]
